FAERS Safety Report 9408715 (Version 2)
Quarter: 2013Q3

REPORT INFORMATION
  Report Type: Spontaneous
  Country: US (occurrence: US)
  Receive Date: 20130718
  Receipt Date: 20130814
  Transmission Date: 20140515
  Serious: Yes (Hospitalization)
  Sender: FDA-Public Use
  Company Number: US-GILEAD-2013-0079265

PATIENT
  Sex: Female

DRUGS (5)
  1. LETAIRIS [Suspect]
     Indication: PULMONARY HYPERTENSION
     Dosage: 5 MG, QD
     Route: 048
     Dates: start: 20121211
  2. LETAIRIS [Suspect]
     Indication: SCLERODERMA
  3. SILDENAFIL [Concomitant]
  4. WARFARIN [Concomitant]
  5. REMODULIN [Concomitant]

REACTIONS (1)
  - Cardiac failure congestive [Unknown]
